FAERS Safety Report 26008484 (Version 1)
Quarter: 2025Q4

REPORT INFORMATION
  Report Type: Spontaneous
  Country: US (occurrence: US)
  Receive Date: 20251106
  Receipt Date: 20251106
  Transmission Date: 20260117
  Serious: No
  Sender: SANOFI AVENTIS
  Company Number: US-SA-2025SA328552

PATIENT
  Age: 41 Year
  Sex: Male
  Weight: 78.02 kg

DRUGS (2)
  1. ALTUVIIIO [Suspect]
     Active Substance: EFANESOCTOCOG ALFA
     Indication: Factor VIII deficiency
     Dosage: 4000 IU, Q5D
     Route: 042
     Dates: start: 20220401
  2. ALTUVIIIO [Suspect]
     Active Substance: EFANESOCTOCOG ALFA
     Indication: Factor VIII deficiency
     Dosage: 4000 IU, Q5D
     Route: 042
     Dates: start: 20220401

REACTIONS (1)
  - Conjunctivitis allergic [Not Recovered/Not Resolved]

NARRATIVE: CASE EVENT DATE: 20250707
